FAERS Safety Report 10968064 (Version 2)
Quarter: 2015Q2

REPORT INFORMATION
  Report Type: Report from Study
  Country: KR (occurrence: KR)
  Receive Date: 20150330
  Receipt Date: 20150630
  Transmission Date: 20150821
  Serious: Yes (Hospitalization)
  Sender: FDA-Public Use
  Company Number: KR-EISAI MEDICAL RESEARCH-EC-2015-005429

PATIENT
  Age: 51 Year
  Sex: Male
  Weight: 57 kg

DRUGS (8)
  1. TENOFOVIR [Concomitant]
     Active Substance: TENOFOVIR
  2. HYDROCORTISONE 2.5% [Concomitant]
  3. TIROPAMIDE HCL [Concomitant]
  4. LENVATINIB [Suspect]
     Active Substance: LENVATINIB
     Route: 048
     Dates: start: 20150327
  5. PINAVERIUM [Concomitant]
     Active Substance: PINAVERIUM BROMIDE
  6. LOPERAMIDE [Concomitant]
     Active Substance: LOPERAMIDE
  7. LENVATINIB [Suspect]
     Active Substance: LENVATINIB
     Indication: HEPATOCELLULAR CARCINOMA
     Route: 048
     Dates: start: 20140103, end: 20150326
  8. PANTOPRAZOLE [Concomitant]
     Active Substance: PANTOPRAZOLE SODIUM

REACTIONS (1)
  - Diarrhoea [Recovered/Resolved]

NARRATIVE: CASE EVENT DATE: 20150302
